FAERS Safety Report 8228225-8 (Version None)
Quarter: 2012Q1

REPORT INFORMATION
  Report Type: 
  Country: None (occurrence: None)
  Receive Date: 20120322
  Receipt Date: 20111122
  Transmission Date: 20120608
  Serious: Yes (Hospitalization)
  Sender: FDA-Public Use
  Company Number: US-BRISTOL-MYERS SQUIBB COMPANY-16243990

PATIENT
  Age: 90 Year
  Sex: Female

DRUGS (1)
  1. ERBITUX [Suspect]
     Dosage: INFUSION

REACTIONS (1)
  - INFUSION RELATED REACTION [None]
